FAERS Safety Report 9361212 (Version 1)
Quarter: 2013Q2

REPORT INFORMATION
  Report Type: Spontaneous
  Country: FR (occurrence: FR)
  Receive Date: 20130621
  Receipt Date: 20130621
  Transmission Date: 20140414
  Serious: Yes (Other)
  Sender: FDA-Public Use
  Company Number: FR-BRISTOL-MYERS SQUIBB COMPANY-19017268

PATIENT
  Age: 51 Year
  Sex: Male

DRUGS (5)
  1. REYATAZ [Suspect]
  2. NORVIR [Suspect]
  3. TRUVADA [Suspect]
  4. SUSTIVA [Concomitant]
  5. EPIVIR [Concomitant]

REACTIONS (3)
  - Renal failure acute [Recovered/Resolved]
  - Calculus urinary [Recovered/Resolved]
  - Renal colic [Recovered/Resolved]
